FAERS Safety Report 10963458 (Version 1)
Quarter: 2015Q1

REPORT INFORMATION
  Report Type: Spontaneous
  Country: US (occurrence: None)
  Receive Date: 20150326
  Receipt Date: 20150326
  Transmission Date: 20150721
  Serious: Yes (Death, Hospitalization)
  Sender: FDA-Public Use
  Company Number: FR-ALSI-201500055

PATIENT
  Age: 85 Year
  Sex: Female

DRUGS (2)
  1. OXYGENE [Suspect]
     Active Substance: OXYGEN
     Indication: PULMONARY FIBROSIS
     Dosage: 3 1 ONCE A MINUTE RESPIRATORY
     Dates: end: 20150315
  2. OXYGEN. [Suspect]
     Active Substance: OXYGEN

REACTIONS (4)
  - Underdose [None]
  - Intentional product misuse [None]
  - Device failure [None]
  - Oxygen saturation decreased [None]

NARRATIVE: CASE EVENT DATE: 20150315
